FAERS Safety Report 13632818 (Version 2)
Quarter: 2017Q3

REPORT INFORMATION
  Report Type: Spontaneous
  Country: US (occurrence: US)
  Receive Date: 20170609
  Receipt Date: 20170727
  Transmission Date: 20171127
  Serious: Yes (Hospitalization)
  Sender: FDA-Public Use
  Company Number: US-ASTRAZENECA-2017SE59802

PATIENT
  Sex: Female
  Weight: 63.5 kg

DRUGS (1)
  1. TUDORZA PRESSAIR [Suspect]
     Active Substance: ACLIDINIUM BROMIDE
     Indication: CHRONIC OBSTRUCTIVE PULMONARY DISEASE
     Dosage: 400 MCG ONE PUFF DAILY
     Route: 055
     Dates: start: 2014

REACTIONS (5)
  - Blood pressure decreased [Recovered/Resolved]
  - Nasopharyngitis [Unknown]
  - Device malfunction [Unknown]
  - Malaise [Unknown]
  - Off label use [Unknown]
